FAERS Safety Report 12393935 (Version 1)
Quarter: 2016Q2

REPORT INFORMATION
  Report Type: Spontaneous
  Country: US (occurrence: US)
  Receive Date: 20160523
  Receipt Date: 20160523
  Transmission Date: 20160815
  Serious: No
  Sender: FDA-Public Use
  Company Number: US-BAYER-2016-097288

PATIENT
  Age: 36 Year
  Sex: Female
  Weight: 49.89 kg

DRUGS (1)
  1. ALEVE [Suspect]
     Active Substance: NAPROXEN SODIUM
     Dosage: UNK

REACTIONS (4)
  - Drug ineffective [None]
  - Muscle spasms [None]
  - Product use issue [Unknown]
  - Foot deformity [None]

NARRATIVE: CASE EVENT DATE: 201601
